FAERS Safety Report 16350242 (Version 1)
Quarter: 2019Q2

REPORT INFORMATION
  Report Type: Report from Study
  Country: None (occurrence: US)
  Receive Date: 20190524
  Receipt Date: 20190524
  Transmission Date: 20190711
  Serious: Yes (Other)
  Sender: FDA-Public Use
  Company Number: US-ABBVIE-19K-163-2790854-00

PATIENT
  Sex: Female

DRUGS (3)
  1. HUMIRA [Suspect]
     Active Substance: ADALIMUMAB
     Indication: RHEUMATOID ARTHRITIS
     Route: 058
     Dates: end: 201902
  2. HUMIRA [Suspect]
     Active Substance: ADALIMUMAB
     Route: 058
     Dates: start: 2019
  3. LIPITOR [Concomitant]
     Active Substance: ATORVASTATIN CALCIUM
     Indication: BLOOD CHOLESTEROL

REACTIONS (5)
  - Glucose tolerance impaired [Unknown]
  - Coronary artery disease [Recovered/Resolved]
  - Peripheral swelling [Recovered/Resolved with Sequelae]
  - Joint swelling [Recovered/Resolved with Sequelae]
  - Neuroma [Recovered/Resolved]

NARRATIVE: CASE EVENT DATE: 2019
